FAERS Safety Report 15083444 (Version 2)
Quarter: 2018Q3

REPORT INFORMATION
  Report Type: Spontaneous
  Country: JP (occurrence: JP)
  Receive Date: 20180628
  Receipt Date: 20180810
  Transmission Date: 20181010
  Serious: Yes (Hospitalization, Other)
  Sender: FDA-Public Use
  Company Number: JP-ELI_LILLY_AND_COMPANY-JP201806012238

PATIENT
  Age: 78 Year
  Sex: Male

DRUGS (4)
  1. BAYASPIRIN [Concomitant]
     Active Substance: ASPIRIN
     Dosage: 100 MG, DAILY
     Route: 048
  2. BAYASPIRIN [Concomitant]
     Active Substance: ASPIRIN
     Indication: ACUTE MYOCARDIAL INFARCTION
     Dosage: 100 MG, DAILY
     Route: 048
  3. PRASUGREL HYDROCHLORIDE [Suspect]
     Active Substance: PRASUGREL HYDROCHLORIDE
     Dosage: 3.75 MG, DAILY
     Route: 048
     Dates: start: 20171116
  4. PRASUGREL HYDROCHLORIDE [Suspect]
     Active Substance: PRASUGREL HYDROCHLORIDE
     Indication: ACUTE MYOCARDIAL INFARCTION
     Dosage: 3.75 MG, DAILY
     Route: 048
     Dates: start: 20171025, end: 20171113

REACTIONS (5)
  - Fall [Unknown]
  - Contusion [Unknown]
  - Lumbar vertebral fracture [Recovering/Resolving]
  - Cerebral haemangioma [Recovering/Resolving]
  - Skin abrasion [Unknown]

NARRATIVE: CASE EVENT DATE: 20171113
